FAERS Safety Report 9236284 (Version 2)
Quarter: 2013Q2

REPORT INFORMATION
  Report Type: Spontaneous
  Country: US (occurrence: US)
  Receive Date: 20130417
  Receipt Date: 20130509
  Transmission Date: 20140414
  Serious: Yes (Congenital Anomaly, Other)
  Sender: FDA-Public Use
  Company Number: US-PFIZER INC-2013119269

PATIENT
  Sex: Female

DRUGS (3)
  1. SERTRALINE HCL [Suspect]
     Indication: DEPRESSION
     Dosage: UNK
     Route: 064
     Dates: start: 200902, end: 200907
  2. PRENATAL VITAMINS [Concomitant]
     Dosage: UNK
     Route: 064
  3. CELEXA [Concomitant]
     Dosage: UNK
     Route: 064

REACTIONS (9)
  - Foetal exposure during pregnancy [Unknown]
  - Intestinal obstruction [Unknown]
  - Congenital anaemia [Unknown]
  - Small intestinal obstruction [Unknown]
  - Atrial septal defect [Unknown]
  - Intraventricular haemorrhage neonatal [Unknown]
  - Sepsis neonatal [Unknown]
  - Foetal growth restriction [Unknown]
  - Premature baby [Unknown]
